FAERS Safety Report 20544362 (Version 1)
Quarter: 2022Q1

REPORT INFORMATION
  Report Type: Spontaneous
  Country: US (occurrence: US)
  Receive Date: 20220303
  Receipt Date: 20220303
  Transmission Date: 20220423
  Serious: No
  Sender: FDA-Public Use
  Company Number: US-AMGEN-USASP2022033777

PATIENT
  Age: 65 Year
  Sex: Female

DRUGS (1)
  1. MVASI [Suspect]
     Active Substance: BEVACIZUMAB-AWWB
     Indication: Glioblastoma
     Dosage: 750 MILLIGRAM
     Route: 065
     Dates: start: 20220125

REACTIONS (1)
  - Blood pressure inadequately controlled [Unknown]

NARRATIVE: CASE EVENT DATE: 20220222
